FAERS Safety Report 23195134 (Version 3)
Quarter: 2024Q3

REPORT INFORMATION
  Report Type: Spontaneous
  Country: US (occurrence: US)
  Receive Date: 20231117
  Receipt Date: 20240701
  Transmission Date: 20241017
  Serious: No
  Sender: UCB
  Company Number: US-UCBSA-2023053481

PATIENT
  Sex: Female

DRUGS (2)
  1. NAYZILAM [Suspect]
     Active Substance: MIDAZOLAM
     Indication: Epilepsy
     Dosage: UNK, AS NEEDED (PRN)
     Dates: start: 20211107
  2. NAYZILAM [Suspect]
     Active Substance: MIDAZOLAM
     Dosage: 50MG/ML

REACTIONS (2)
  - Product dose omission issue [Unknown]
  - Device malfunction [Unknown]
